FAERS Safety Report 7523389-3 (Version None)
Quarter: 2011Q2

REPORT INFORMATION
  Report Type: 
  Country: None (occurrence: None)
  Receive Date: 20110603
  Receipt Date: 20110526
  Transmission Date: 20111010
  Serious: Yes (Other)
  Sender: FDA-Public Use
  Company Number: B0722956A

PATIENT
  Age: 52 Year
  Sex: Female

DRUGS (2)
  1. PROMACTA [Suspect]
     Dosage: 1IUAX PER DAY
     Route: 048
     Dates: start: 20110316
  2. PROMACTA [Suspect]
     Dosage: 3IUAX UNKNOWN
     Route: 048
     Dates: end: 20110511

REACTIONS (3)
  - HAEMORRHAGE SUBCUTANEOUS [None]
  - ERYTHROBLAST COUNT INCREASED [None]
  - ANAEMIA [None]
